FAERS Safety Report 12628874 (Version 1)
Quarter: 2016Q3

REPORT INFORMATION
  Report Type: Spontaneous
  Country: US (occurrence: None)
  Receive Date: 20160805
  Receipt Date: 20160805
  Transmission Date: 20161109
  Serious: No
  Sender: FDA-Public Use
  Company Number: None

PATIENT

DRUGS (2)
  1. DOBUTAMINE HCL DOBUTAMINE BAXTER HEALTHCARE CORPORATION [Suspect]
     Active Substance: DOBUTAMINE HYDROCHLORIDE
  2. DOBUTAMINE HCL DOBUTAMINE BAXTER HEALTHCARE CORPORATION [Suspect]
     Active Substance: DOBUTAMINE HYDROCHLORIDE

REACTIONS (2)
  - Product label confusion [None]
  - Product name confusion [None]
